FAERS Safety Report 13204874 (Version 1)
Quarter: 2017Q1

REPORT INFORMATION
  Report Type: Spontaneous
  Country: US (occurrence: US)
  Receive Date: 20170208
  Receipt Date: 20170208
  Transmission Date: 20170428
  Serious: Yes (Hospitalization)
  Sender: FDA-Public Use
  Company Number: None

PATIENT
  Age: 65 Year
  Sex: Female
  Weight: 74.91 kg

DRUGS (13)
  1. TRAZODONE [Concomitant]
     Active Substance: TRAZODONE HYDROCHLORIDE
  2. ALPRAZOLAM. [Concomitant]
     Active Substance: ALPRAZOLAM
  3. HYDROCODONE [Concomitant]
     Active Substance: HYDROCODONE
  4. CENTRUM SILVER [Concomitant]
     Active Substance: MINERALS\VITAMINS
  5. PRAVASTATIN. [Concomitant]
     Active Substance: PRAVASTATIN
  6. HYDROCHOROTHIA [Concomitant]
  7. AMITRIPTYLINE [Concomitant]
     Active Substance: AMITRIPTYLINE
  8. MUCINEX [Concomitant]
     Active Substance: GUAIFENESIN
  9. ENULOSE [Concomitant]
     Active Substance: LACTULOSE
  10. REMICADE [Suspect]
     Active Substance: INFLIXIMAB
     Indication: RHEUMATOID ARTHRITIS
     Route: 042
     Dates: start: 20170105, end: 20170105
  11. METHYLPREDNISONE [Concomitant]
     Active Substance: METHYLPREDNISOLONE
  12. STOOL SOFTENER (DOCUSATE) [Concomitant]
     Active Substance: DOCUSATE
  13. MORPHINE PUMP [Concomitant]
     Active Substance: MORPHINE

REACTIONS (2)
  - Sepsis [None]
  - Pneumonia [None]
